FAERS Safety Report 7044860-7 (Version None)
Quarter: 2010Q4

REPORT INFORMATION
  Report Type: 
  Country: None (occurrence: None)
  Receive Date: 20101014
  Receipt Date: 20101005
  Transmission Date: 20110411
  Serious: Yes (Other)
  Sender: FDA-Public Use
  Company Number: PHHY2010US66665

PATIENT
  Sex: Male

DRUGS (5)
  1. EXTAVIA [Suspect]
     Indication: MULTIPLE SCLEROSIS
     Dosage: 0.25 MG, QOD
     Route: 058
     Dates: start: 20100330
  2. AMANTADINE [Concomitant]
     Dosage: 100 MG, BID
  3. LEXAPRO [Concomitant]
     Dosage: 10 MG, QD
  4. AVODART [Concomitant]
     Dosage: UNK, QD
  5. MULTI-VITAMIN [Concomitant]
     Dosage: 1 DF, UNK

REACTIONS (7)
  - ABASIA [None]
  - CENTRAL NERVOUS SYSTEM LESION [None]
  - DYSSTASIA [None]
  - FALL [None]
  - HAEMORRHAGE [None]
  - HEAD INJURY [None]
  - PAIN IN EXTREMITY [None]
